FAERS Safety Report 7759032-8 (Version None)
Quarter: 2011Q3

REPORT INFORMATION
  Report Type: 
  Country: None (occurrence: None)
  Receive Date: 20110919
  Receipt Date: 20110909
  Transmission Date: 20111222
  Serious: Yes (Hospitalization)
  Sender: FDA-Public Use
  Company Number: US-US-EMD SERONO, INC.-7069631

PATIENT
  Sex: Male

DRUGS (1)
  1. REBIF [Suspect]
     Indication: PRODUCT USED FOR UNKNOWN INDICATION
     Route: 058
     Dates: start: 20070712, end: 20110522

REACTIONS (4)
  - NEUTRALISING ANTIBODIES POSITIVE [None]
  - JC VIRUS TEST POSITIVE [None]
  - CYSTITIS [None]
  - CENTRAL NERVOUS SYSTEM LESION [None]
